FAERS Safety Report 20222155 (Version 1)
Quarter: 2021Q4

REPORT INFORMATION
  Report Type: Spontaneous
  Country: US (occurrence: US)
  Receive Date: 20211223
  Receipt Date: 20211223
  Transmission Date: 20220303
  Serious: Yes (Hospitalization, Other)
  Sender: FDA-Public Use
  Company Number: US-UCBSA-2021059388

PATIENT
  Age: 25 Year
  Sex: Male

DRUGS (3)
  1. LEVETIRACETAM [Suspect]
     Active Substance: LEVETIRACETAM
     Indication: Seizure like phenomena
     Dosage: 1000 MILLIGRAM
     Route: 042
  2. LEVETIRACETAM [Suspect]
     Active Substance: LEVETIRACETAM
     Indication: Off label use
     Dosage: 500 MILLIGRAM, 2X/DAY (BID)
  3. LORAZEPAM [Concomitant]
     Active Substance: LORAZEPAM
     Indication: Seizure like phenomena
     Dosage: 1 MILLIGRAM
     Route: 042

REACTIONS (3)
  - Seizure [Unknown]
  - Generalised tonic-clonic seizure [Unknown]
  - Off label use [Unknown]
